FAERS Safety Report 7659299-0 (Version None)
Quarter: 2011Q3

REPORT INFORMATION
  Report Type: 
  Country: None (occurrence: None)
  Receive Date: 20110805
  Receipt Date: 20110725
  Transmission Date: 20111222
  Serious: Yes (Other)
  Sender: FDA-Public Use
  Company Number: US-ROCHE-792775

PATIENT

DRUGS (2)
  1. CELECOXIB [Suspect]
     Indication: RECTAL CANCER
     Route: 048
  2. CAPECITABINE [Suspect]
     Indication: RECTAL CANCER
     Dosage: 1 G IN THE AM, AND 2 G IN THE PM
     Route: 048

REACTIONS (7)
  - FEMALE GENITAL TRACT FISTULA [None]
  - ANASTOMOTIC LEAK [None]
  - SARCOMA UTERUS [None]
  - INCISION SITE INFECTION [None]
  - ANAL STENOSIS [None]
  - VAGINAL DISORDER [None]
  - ERECTILE DYSFUNCTION [None]
